FAERS Safety Report 7592714-X (Version None)
Quarter: 2011Q3

REPORT INFORMATION
  Report Type: 
  Country: None (occurrence: None)
  Receive Date: 20110706
  Receipt Date: 20110630
  Transmission Date: 20111222
  Serious: Yes (Other)
  Sender: FDA-Public Use
  Company Number: US-PFIZER INC-2011147552

PATIENT
  Age: 23 Year
  Sex: Female
  Weight: 56.7 kg

DRUGS (3)
  1. DEPO-PROVERA [Suspect]
     Indication: OFF LABEL USE
     Dosage: 150 MG, SINGLE
     Dates: start: 20110628
  2. DEPO-PROVERA [Suspect]
     Indication: ENDOMETRIOSIS
  3. ADVAIR DISKUS 100/50 [Concomitant]
     Indication: ASTHMA
     Dosage: UNK

REACTIONS (3)
  - BREAST MASS [None]
  - BREAST SWELLING [None]
  - BREAST TENDERNESS [None]
